FAERS Safety Report 7069647-0 (Version None)
Quarter: 2010Q4

REPORT INFORMATION
  Report Type: 
  Country: None (occurrence: None)
  Receive Date: 20101028
  Receipt Date: 20100408
  Transmission Date: 20110411
  Serious: No
  Sender: FDA-Public Use
  Company Number: US-WYE-H14531610

PATIENT
  Sex: Female
  Weight: 70.37 kg

DRUGS (4)
  1. EFFEXOR [Suspect]
     Indication: DEPRESSION
     Dates: start: 20091201
  2. EFFEXOR [Suspect]
  3. EFFEXOR [Suspect]
     Dates: end: 20100101
  4. EFFEXOR [Suspect]
     Dates: start: 20100101

REACTIONS (2)
  - BLOOD PRESSURE DECREASED [None]
  - DIZZINESS [None]
